FAERS Safety Report 4964748-2 (Version None)
Quarter: 2006Q1

REPORT INFORMATION
  Report Type: 
  Country: None (occurrence: None)
  Receive Date: 20060331
  Receipt Date: 20060314
  Transmission Date: 20060701
  Serious: Yes (Life-Threatening, Hospitalization)
  Sender: FDA-Public Use
  Company Number: FR200601002523

PATIENT
  Age: 81 Year
  Sex: Female
  Weight: 53 kg

DRUGS (9)
  1. FORTEO [Suspect]
     Indication: OSTEOPOROSIS
     Dosage: 20 UG, DAILY (1/D), SUBCUTANEOUS
     Route: 058
     Dates: start: 20041227, end: 20051124
  2. FORTEO PEN (250MCG/ML) [Concomitant]
  3. PREDNISONE TAB [Concomitant]
  4. IDEOS (CALCIUM CARBONATE, COLECALCIFEROL) [Concomitant]
  5. NOCTAMID (LORMETAZEPAM) [Concomitant]
  6. NOVATREX (AZITHROMYCIN) [Concomitant]
  7. DILTIAZEM HYDROCHLORIDE [Concomitant]
  8. TRAMADOL HCL [Concomitant]
  9. ISKEDYL (DIHYDROERGOCRISTINE MESILATE, RAUBASINE) DROP [Concomitant]

REACTIONS (1)
  - MYOCARDIAL INFARCTION [None]
